FAERS Safety Report 6167153-9 (Version None)
Quarter: 2009Q2

REPORT INFORMATION
  Report Type: 
  Country: None (occurrence: None)
  Receive Date: 20090424
  Receipt Date: 20090421
  Transmission Date: 20091009
  Serious: Yes (Hospitalization, Other)
  Sender: FDA-Public Use
  Company Number: JP-MERCK-0811USA03018

PATIENT
  Age: 79 Year
  Sex: Female
  Weight: 32 kg

DRUGS (3)
  1. FOSAMAX [Suspect]
     Indication: OSTEOPOROSIS
     Route: 048
     Dates: start: 20080925, end: 20081114
  2. FOSAMAX [Suspect]
     Route: 048
     Dates: start: 20080606, end: 20080703
  3. BONALON [Suspect]
     Indication: OSTEOPOROSIS
     Route: 048
     Dates: start: 20080501, end: 20080529

REACTIONS (4)
  - DENTAL FISTULA [None]
  - FALL [None]
  - NAUSEA [None]
  - OSTEOMYELITIS [None]
